FAERS Safety Report 12631031 (Version 2)
Quarter: 2016Q3

REPORT INFORMATION
  Report Type: Spontaneous
  Country: US (occurrence: US)
  Receive Date: 20160808
  Receipt Date: 20160808
  Transmission Date: 20161109
  Serious: No
  Sender: FDA-Public Use
  Company Number: US-BEH-2015051943

PATIENT
  Sex: Female
  Weight: 72 kg

DRUGS (9)
  1. HIZENTRA [Suspect]
     Active Substance: HUMAN IMMUNOGLOBULIN G
     Indication: HYPOGAMMAGLOBULINAEMIA
     Route: 058
  2. FLUVOXAMINE MALEATE. [Concomitant]
     Active Substance: FLUVOXAMINE MALEATE
     Route: 048
  3. PROAIR HFA 90 MCG HFA AER AD [Concomitant]
     Dosage: 1 DOSE AS NEEDED
  4. DIPHENHYDRAMINE. [Concomitant]
     Active Substance: DIPHENHYDRAMINE
     Indication: ANAPHYLACTIC REACTION
     Dosage: 1 DOSE AS DIRECTED
     Route: 048
  5. EPIPEN AUTOINJECTOR [Concomitant]
     Dosage: 1 DOSE AS DIRECTED
     Route: 048
  6. LIDOCAINE 4% [Concomitant]
     Active Substance: LIDOCAINE
     Dosage: 1 DOSE AS DIRECTED
     Route: 061
  7. PRENATAL 1-30-975-200 CAPSULE [Concomitant]
     Dosage: 1 CAPSULE DAILY
     Route: 048
  8. ACETAMINOPHEN. [Concomitant]
     Active Substance: ACETAMINOPHEN
     Dosage: 1 DOSE AS DIRECTED
     Route: 048
  9. ASACOL HD [Concomitant]
     Active Substance: MESALAMINE
     Dosage: ASACOL HD 800 MG TABLET DR
     Route: 048

REACTIONS (6)
  - Back pain [Unknown]
  - Pain [Unknown]
  - Pyrexia [Unknown]
  - Vomiting [Unknown]
  - Fatigue [Unknown]
  - Headache [Unknown]
